FAERS Safety Report 11030986 (Version 1)
Quarter: 2015Q2

REPORT INFORMATION
  Report Type: Spontaneous
  Country: US (occurrence: US)
  Receive Date: 20150415
  Receipt Date: 20150415
  Transmission Date: 20150821
  Serious: No
  Sender: FDA-Public Use
  Company Number: US-ASTRAZENECA-2015SE32691

PATIENT
  Age: 68 Year
  Sex: Female
  Weight: 90.7 kg

DRUGS (2)
  1. UNSPECIFIED HIGH BLOOD PRESSURE MEDICATION [Concomitant]
     Active Substance: UNSPECIFIED INGREDIENT
     Indication: HYPERTENSION
  2. NEXIUM [Suspect]
     Active Substance: ESOMEPRAZOLE MAGNESIUM
     Indication: GASTROOESOPHAGEAL REFLUX DISEASE
     Route: 048
     Dates: start: 2010

REACTIONS (5)
  - Gastritis [Unknown]
  - External ear pain [Not Recovered/Not Resolved]
  - Malaise [Not Recovered/Not Resolved]
  - Off label use [Unknown]
  - Feeling cold [Recovered/Resolved]

NARRATIVE: CASE EVENT DATE: 2014
